FAERS Safety Report 5655781-6 (Version None)
Quarter: 2008Q1

REPORT INFORMATION
  Report Type: 
  Country: None (occurrence: None)
  Receive Date: 20080307
  Receipt Date: 20080225
  Transmission Date: 20080703
  Serious: Yes (Other)
  Sender: FDA-Public Use
  Company Number: US-PFIZER INC-2008018286

PATIENT
  Sex: Female
  Weight: 72 kg

DRUGS (3)
  1. LYRICA [Suspect]
     Indication: CARPAL TUNNEL SYNDROME
     Dates: start: 20080223, end: 20080224
  2. LYRICA [Suspect]
     Indication: NEURALGIA
  3. METOPROLOL TARTRATE [Concomitant]

REACTIONS (2)
  - DIZZINESS [None]
  - FALL [None]
